FAERS Safety Report 12873183 (Version 3)
Quarter: 2016Q4

REPORT INFORMATION
  Report Type: Spontaneous
  Country: IT (occurrence: IT)
  Receive Date: 20161021
  Receipt Date: 20161201
  Transmission Date: 20170207
  Serious: Yes (Death)
  Sender: FDA-Public Use
  Company Number: IT-AUROBINDO-AUR-APL-2016-12754

PATIENT
  Age: 48 Year
  Sex: Male

DRUGS (3)
  1. CLOPIDOGREL AUROBINDO 75MG [Suspect]
     Active Substance: CLOPIDOGREL BISULFATE
     Indication: CARDIAC DISORDER
     Dosage: 75 MG, DAILY
     Route: 048
     Dates: start: 20160921, end: 20160924
  2. PANTORC [Concomitant]
     Active Substance: PANTOPRAZOLE SODIUM
     Indication: PRODUCT USED FOR UNKNOWN INDICATION
     Dosage: 40 MG, UNK
     Route: 048
     Dates: start: 20160921, end: 20160925
  3. CARDIOASPIRIN [Concomitant]
     Active Substance: ASPIRIN
     Indication: PRODUCT USED FOR UNKNOWN INDICATION
     Dosage: UNK
     Route: 065
     Dates: start: 20160921, end: 20160924

REACTIONS (2)
  - Drug ineffective [Fatal]
  - Thrombosis [Fatal]

NARRATIVE: CASE EVENT DATE: 20160925
